FAERS Safety Report 8819252 (Version 1)
Quarter: 2012Q4

REPORT INFORMATION
  Report Type: Spontaneous
  Country: US (occurrence: None)
  Receive Date: 20121004
  Receipt Date: 20121004
  Transmission Date: 20130627
  Serious: Yes (Other)
  Sender: FDA-Public Use
  Company Number: None

PATIENT
  Age: 55 Year
  Sex: Female
  Weight: 56.7 kg

DRUGS (4)
  1. NUVIGIL [Suspect]
     Indication: BRAIN INJURY
     Dosage: half of one 150 mg tablet, once in morning, po
     Route: 048
     Dates: start: 20120924, end: 20120929
  2. NUVIGIL [Suspect]
     Indication: SLEEP APNEA
     Dosage: half of one 150 mg tablet, once in morning, po
     Route: 048
     Dates: start: 20120924, end: 20120929
  3. NUVIGIL [Suspect]
     Indication: COGNITIVE IMPAIRMENT
     Dosage: half of one 150 mg tablet, once in morning, po
     Route: 048
     Dates: start: 20120924, end: 20120929
  4. NUVIGIL [Suspect]
     Indication: DISTURBANCE IN ATTENTION
     Dosage: half of one 150 mg tablet, once in morning, po
     Route: 048
     Dates: start: 20120924, end: 20120929

REACTIONS (4)
  - Initial insomnia [None]
  - Insomnia [None]
  - Headache [None]
  - Flushing [None]
